FAERS Safety Report 6818771-3 (Version None)
Quarter: 2010Q2

REPORT INFORMATION
  Report Type: 
  Country: None (occurrence: None)
  Receive Date: 20100630
  Receipt Date: 20100624
  Transmission Date: 20101027
  Serious: Yes (Hospitalization, Other)
  Sender: FDA-Public Use
  Company Number: 2010SP035703

PATIENT
  Age: 58 Year
  Sex: Female
  Weight: 68.6 kg

DRUGS (2)
  1. TEMOZOLOMIDE [Suspect]
     Indication: GLIOBLASTOMA
     Dates: start: 20100315, end: 20100421
  2. RAD001C [Suspect]
     Indication: GLIOBLASTOMA
     Dosage: 420MG
     Route: 048
     Dates: start: 20100315, end: 20100415

REACTIONS (4)
  - DEHYDRATION [None]
  - GLIOBLASTOMA [None]
  - MALIGNANT NEOPLASM PROGRESSION [None]
  - PLATELET COUNT DECREASED [None]
